FAERS Safety Report 4656753-0 (Version None)
Quarter: 2005Q2

REPORT INFORMATION
  Report Type: 
  Country: None (occurrence: None)
  Receive Date: 20050408
  Receipt Date: 20050220
  Transmission Date: 20051028
  Serious: No
  Sender: FDA-Public Use
  Company Number: 230650K05USA

PATIENT
  Age: 58 Year
  Sex: Female

DRUGS (1)
  1. REBIF (INTERFERON BETA) [Suspect]
     Indication: MULTIPLE SCLEROSIS
     Dates: start: 20050112

REACTIONS (2)
  - PYREXIA [None]
  - VIRAL INFECTION [None]
